FAERS Safety Report 7629991-2 (Version None)
Quarter: 2011Q3

REPORT INFORMATION
  Report Type: 
  Country: None (occurrence: None)
  Receive Date: 20110715
  Receipt Date: 20110701
  Transmission Date: 20111222
  Serious: Yes (Death, Hospitalization)
  Sender: FDA-Public Use
  Company Number: WAES 1106FRA00080

PATIENT
  Age: 56 Year
  Sex: Female

DRUGS (8)
  1. SULFAMETHOXAZOLE AND TRIMETHOPRIM [Concomitant]
  2. ZOPICLONE [Concomitant]
  3. TAB RALTEGRAVIR POTASSIUM [Suspect]
     Indication: HIV INFECTION
     Dosage: 400 MG/BID, PO
     Route: 048
     Dates: start: 20110429, end: 20110619
  4. TAB DARUNAVIR [Suspect]
     Indication: HIV INFECTION
     Dosage: 400 MG/BID, PO
     Route: 048
     Dates: start: 20110429, end: 20110619
  5. ACETAMINOPHEN [Concomitant]
  6. GLYCERIN + MINERAL OIL + PETROLATUM [Concomitant]
  7. RITONAVIR [Suspect]
     Indication: HIV INFECTION
     Dosage: 100 MG, DAILY, PO
     Route: 048
     Dates: start: 20110429
  8. HYDROXYZINE HYDROCHLORIDE [Concomitant]

REACTIONS (14)
  - DRUG RASH WITH EOSINOPHILIA AND SYSTEMIC SYMPTOMS [None]
  - ERYTHEMA [None]
  - DIALYSIS [None]
  - CYTOMEGALOVIRUS TEST POSITIVE [None]
  - FACE OEDEMA [None]
  - DRUG HYPERSENSITIVITY [None]
  - HYPERTHERMIA [None]
  - GENERALISED OEDEMA [None]
  - MULTI-ORGAN FAILURE [None]
  - SKIN TOXICITY [None]
  - DERMATITIS EXFOLIATIVE [None]
  - DISSEMINATED INTRAVASCULAR COAGULATION [None]
  - MOUTH ULCERATION [None]
  - GENERAL PHYSICAL HEALTH DETERIORATION [None]
